FAERS Safety Report 24026488 (Version 1)
Quarter: 2024Q2

REPORT INFORMATION
  Report Type: Report from Study
  Country: CA (occurrence: CA)
  Receive Date: 20240628
  Receipt Date: 20240628
  Transmission Date: 20240716
  Serious: Yes (Death, Other)
  Sender: FDA-Public Use
  Company Number: CA-SANDOZ-SDZ2023CA029920

PATIENT
  Sex: Female

DRUGS (1)
  1. FULVESTRANT [Suspect]
     Active Substance: FULVESTRANT
     Indication: Hormone receptor positive HER2 negative breast cancer
     Dosage: DAYS 0, 14, 28 AND THEN EVERY 28 DAYS
     Route: 030
     Dates: start: 20230817

REACTIONS (3)
  - Death [Fatal]
  - Hormone receptor positive HER2 negative breast cancer [Unknown]
  - Disease progression [Unknown]
